FAERS Safety Report 17363166 (Version 1)
Quarter: 2020Q1

REPORT INFORMATION
  Report Type: Spontaneous
  Country: PT (occurrence: PT)
  Receive Date: 20200203
  Receipt Date: 20200203
  Transmission Date: 20200409
  Serious: Yes (Death)
  Sender: FDA-Public Use
  Company Number: PT-ALSI-202000027

PATIENT
  Age: 88 Year
  Sex: Male

DRUGS (1)
  1. OXYGEN. [Suspect]
     Active Substance: OXYGEN
     Indication: CARDIO-RESPIRATORY ARREST
     Route: 055
     Dates: start: 20200113, end: 20200113

REACTIONS (3)
  - Death [Unknown]
  - Product packaging quantity issue [Unknown]
  - Underdose [Unknown]
